FAERS Safety Report 14060665 (Version 2)
Quarter: 2017Q4

REPORT INFORMATION
  Report Type: Spontaneous
  Country: UA (occurrence: UA)
  Receive Date: 20171007
  Receipt Date: 20171011
  Transmission Date: 20180321
  Serious: Yes (Death)
  Sender: FDA-Public Use
  Company Number: UA-ROCHE-2002426

PATIENT
  Sex: Female

DRUGS (2)
  1. GAZYVA [Suspect]
     Active Substance: OBINUTUZUMAB
     Indication: CHRONIC LYMPHOCYTIC LEUKAEMIA
     Route: 065
     Dates: start: 20170925, end: 20170925
  2. GAZYVA [Suspect]
     Active Substance: OBINUTUZUMAB
     Route: 065
     Dates: start: 20170926, end: 20170926

REACTIONS (1)
  - Coronary artery insufficiency [Fatal]

NARRATIVE: CASE EVENT DATE: 20170929
